FAERS Safety Report 5903226-0 (Version None)
Quarter: 2008Q3

REPORT INFORMATION
  Report Type: 
  Country: None (occurrence: None)
  Receive Date: 20080926
  Receipt Date: 20080917
  Transmission Date: 20090109
  Serious: Yes (Death)
  Sender: FDA-Public Use
  Company Number: A-US2006-13875

PATIENT
  Age: 88 Year
  Sex: Male
  Weight: 62.2 kg

DRUGS (1)
  1. TRACLEER [Suspect]
     Indication: PULMONARY ARTERIAL HYPERTENSION
     Dosage: 62.5 MG, BID, ORAL
     Route: 048
     Dates: start: 20061127, end: 20061217

REACTIONS (3)
  - RASH [None]
  - SKIN IRRITATION [None]
  - URTICARIA [None]
